FAERS Safety Report 17180200 (Version 1)
Quarter: 2019Q4

REPORT INFORMATION
  Report Type: Report from Study
  Country: US (occurrence: US)
  Receive Date: 20191220
  Receipt Date: 20191220
  Transmission Date: 20200122
  Serious: Yes (Other)
  Sender: FDA-Public Use
  Company Number: US-SA-2019SA197491

PATIENT
  Age: 54 Year
  Sex: Female

DRUGS (2)
  1. AGALSIDASE BETA [Suspect]
     Active Substance: AGALSIDASE BETA
     Indication: FABRY^S DISEASE
     Dosage: FREQUENCY Q2, DOSE 60
     Route: 041
     Dates: start: 20190619
  2. AGALSIDASE BETA [Suspect]
     Active Substance: AGALSIDASE BETA
     Dosage: FREQUENCY Q2, DOSE 60
     Route: 041
     Dates: start: 20190806

REACTIONS (19)
  - Gastrooesophageal reflux disease [Unknown]
  - Anal incontinence [Unknown]
  - Asthenia [Unknown]
  - Migraine [Unknown]
  - General physical health deterioration [Unknown]
  - Malaise [Unknown]
  - Fatigue [Unknown]
  - Fall [Unknown]
  - Therapeutic response decreased [Unknown]
  - Energy increased [Recovered/Resolved]
  - Haemorrhoids [Unknown]
  - Presyncope [Unknown]
  - Pain in extremity [Unknown]
  - Temperature intolerance [Unknown]
  - Headache [Recovered/Resolved]
  - Head injury [Unknown]
  - Polyp [Unknown]
  - Dizziness [Unknown]
  - Dizziness [Recovered/Resolved]

NARRATIVE: CASE EVENT DATE: 2019
